FAERS Safety Report 18888377 (Version 2)
Quarter: 2021Q2

REPORT INFORMATION
  Report Type: Spontaneous
  Country: JP (occurrence: JP)
  Receive Date: 20210212
  Receipt Date: 20210402
  Transmission Date: 20210717
  Serious: Yes (Other)
  Sender: FDA-Public Use
  Company Number: JP-ASTRAZENECA-2021A039284

PATIENT
  Age: 62 Year
  Sex: Female
  Weight: 61 kg

DRUGS (10)
  1. PACLITAXEL. [Suspect]
     Active Substance: PACLITAXEL
     Indication: OVARIAN CANCER
     Dosage: DOSE UNKNOWN
     Route: 041
     Dates: start: 20170301, end: 20170621
  2. PACLITAXEL. [Suspect]
     Active Substance: PACLITAXEL
     Indication: OVARIAN CANCER
     Dosage: DOSE UNKNOWN
     Route: 041
     Dates: start: 20190320, end: 20190724
  3. AVASTIN [Suspect]
     Active Substance: BEVACIZUMAB
     Indication: OVARIAN CANCER
     Dosage: DOSE UNKNOWN
     Route: 065
     Dates: start: 20190320, end: 20190724
  4. CARBOPLATIN. [Suspect]
     Active Substance: CARBOPLATIN
     Indication: OVARIAN CANCER
     Dosage: DOSE UNKNOWN
     Route: 041
     Dates: start: 20190320, end: 20190724
  5. AVASTIN [Suspect]
     Active Substance: BEVACIZUMAB
     Indication: OVARIAN CANCER
     Dosage: DOSE UNKNOWN
     Route: 065
     Dates: start: 20170301, end: 20170621
  6. LYNPARZA [Suspect]
     Active Substance: OLAPARIB
     Indication: OVARIAN CANCER RECURRENT
     Route: 048
     Dates: start: 20190822, end: 20210121
  7. CARBOPLATIN. [Suspect]
     Active Substance: CARBOPLATIN
     Indication: OVARIAN CANCER
     Dosage: DOSE UNKNOWN
     Route: 041
     Dates: start: 20140407, end: 20140820
  8. CARBOPLATIN. [Suspect]
     Active Substance: CARBOPLATIN
     Indication: OVARIAN CANCER
     Dosage: DOSE UNKNOWN
     Route: 041
     Dates: start: 20170301, end: 20170621
  9. PACLITAXEL. [Suspect]
     Active Substance: PACLITAXEL
     Indication: OVARIAN CANCER
     Dosage: DOSE UNKNOWN
     Route: 041
     Dates: start: 20140407, end: 20140820
  10. AVASTIN [Suspect]
     Active Substance: BEVACIZUMAB
     Indication: OVARIAN CANCER
     Dosage: DOSE UNKNOWN
     Route: 065
     Dates: start: 20170712, end: 20190227

REACTIONS (1)
  - Myelodysplastic syndrome [Not Recovered/Not Resolved]

NARRATIVE: CASE EVENT DATE: 20210121
